FAERS Safety Report 5651823-2 (Version None)
Quarter: 2008Q1

REPORT INFORMATION
  Report Type: 
  Country: None (occurrence: None)
  Receive Date: 20080305
  Receipt Date: 20080225
  Transmission Date: 20080703
  Serious: Yes (Other)
  Sender: FDA-Public Use
  Company Number: US-PFIZER INC-2007104550

PATIENT
  Sex: Male
  Weight: 99.8 kg

DRUGS (15)
  1. DETROL LA [Suspect]
     Indication: POLLAKIURIA
     Route: 048
  2. COUMADIN [Interacting]
  3. TENIDAP SODIUM [Interacting]
  4. DITROPAN [Interacting]
  5. VESICARE [Interacting]
  6. TROSPIUM [Interacting]
  7. DIGITEK [Concomitant]
  8. METOPROLOL TARTRATE [Concomitant]
  9. SIMVASTATIN [Concomitant]
  10. FUROSEMIDE [Concomitant]
  11. LISINOPRIL [Concomitant]
  12. NIACIN [Concomitant]
  13. SITAGLIPTIN [Concomitant]
  14. WARFARIN SODIUM [Concomitant]
  15. GLYBURIDE [Concomitant]

REACTIONS (5)
  - BALANCE DISORDER [None]
  - DIZZINESS [None]
  - DRUG INTERACTION [None]
  - GAIT DISTURBANCE [None]
  - MIGRAINE [None]
